FAERS Safety Report 9323881 (Version 2)
Quarter: 2013Q3

REPORT INFORMATION
  Report Type: Spontaneous
  Country: CZ (occurrence: CZ)
  Receive Date: 20130603
  Receipt Date: 20130719
  Transmission Date: 20140515
  Serious: Yes (Death)
  Sender: FDA-Public Use
  Company Number: CZ-JNJFOC-20130513865

PATIENT
  Sex: 0

DRUGS (13)
  1. DOXORUBICIN [Suspect]
     Indication: CASTLEMAN^S DISEASE
     Route: 042
  2. ADRIAMYCIN [Suspect]
     Indication: CASTLEMAN^S DISEASE
     Route: 042
  3. RITUXIMAB [Suspect]
     Indication: CASTLEMAN^S DISEASE
     Route: 065
  4. CYCLOPHOSPHAMIDE [Suspect]
     Indication: CASTLEMAN^S DISEASE
     Route: 065
  5. VINCRISTINE [Suspect]
     Indication: CASTLEMAN^S DISEASE
     Route: 065
  6. PREDNISONE [Suspect]
     Indication: CASTLEMAN^S DISEASE
     Route: 065
  7. THALIDOMIDE [Suspect]
     Indication: CASTLEMAN^S DISEASE
     Route: 065
  8. ADRIAMYCIN [Suspect]
     Indication: CASTLEMAN^S DISEASE
     Route: 065
  9. BORTEZOMIB [Suspect]
     Indication: CASTLEMAN^S DISEASE
     Route: 065
  10. DEXAMETHASONE [Suspect]
     Indication: CASTLEMAN^S DISEASE
     Route: 065
  11. TOCILIZUMAB [Suspect]
     Indication: CASTLEMAN^S DISEASE
     Route: 065
  12. LENALIDOMIDE [Suspect]
     Indication: CASTLEMAN^S DISEASE
     Route: 065
  13. MELPHALAN [Suspect]
     Indication: PRODUCT USED FOR UNKNOWN INDICATION
     Route: 065

REACTIONS (2)
  - POEMS syndrome [Fatal]
  - Off label use [Unknown]
